FAERS Safety Report 8324253 (Version 2)
Quarter: 2013Q2

REPORT INFORMATION
  Report Type: Spontaneous
  Country: AR (occurrence: AR)
  Receive Date: 20120106
  Receipt Date: 20130515
  Transmission Date: 20140414
  Serious: Yes (Hospitalization)
  Sender: FDA-Public Use
  Company Number: AR-BIOGENIDEC-2011BI048957

PATIENT
  Age: 33 Year
  Sex: Female
  Weight: 55 kg

DRUGS (9)
  1. AVONEX [Suspect]
     Indication: MULTIPLE SCLEROSIS
     Route: 030
     Dates: start: 200902
  2. LIORESAL (BACLOFEN) [Concomitant]
     Route: 048
  3. PLENICA (PREGABALIN) [Concomitant]
     Route: 048
  4. VALIUM (DIAZEPAM) [Concomitant]
     Route: 048
  5. ALPLAX (ALPRAZOLAM) [Concomitant]
     Route: 048
  6. IBIPIRAC (IBIPROFEN) [Concomitant]
     Route: 048
  7. TANVIMIL (VITAMINS) [Concomitant]
     Route: 048
  8. DITROPAN (OXIBUTININ) [Concomitant]
  9. GLATIRAMER [Concomitant]

REACTIONS (4)
  - Femur fracture [Recovered/Resolved]
  - Bronchitis [Recovered/Resolved]
  - Haematocrit decreased [Unknown]
  - Depressed mood [Unknown]
